FAERS Safety Report 9176824 (Version 2)
Quarter: 2013Q4

REPORT INFORMATION
  Report Type: Spontaneous
  Country: US (occurrence: US)
  Receive Date: 20120531
  Receipt Date: 20131119
  Transmission Date: 20140711
  Serious: Yes (Other)
  Sender: FDA-Public Use
  Company Number: US201201006968

PATIENT
  Age: 54 Year
  Sex: Female
  Weight: 114.74 kg

DRUGS (7)
  1. BYETTA PEN DISPOSABLE [Suspect]
     Route: 058
     Dates: start: 20100630, end: 201102
  2. METFORMIN [Concomitant]
     Route: 048
  3. LISINOPRIL [Concomitant]
     Dosage: TAB
     Route: 048
  4. VICTOZA [Concomitant]
  5. SIMVASTATIN TAB [Concomitant]
     Dosage: TAB
     Route: 048
  6. TRIAMCINOLONE ACE OINTMENT [Concomitant]
  7. HYDROCHLOROTHIAZIDE [Concomitant]
     Dosage: TAB
     Route: 048

REACTIONS (3)
  - Pancreatitis [Recovered/Resolved]
  - Cholecystitis chronic [Unknown]
  - Cholelithiasis [Unknown]
